FAERS Safety Report 15453371 (Version 1)
Quarter: 2018Q4

REPORT INFORMATION
  Report Type: Spontaneous
  Country: IN (occurrence: IN)
  Receive Date: 20181001
  Receipt Date: 20181001
  Transmission Date: 20190204
  Serious: Yes (Other)
  Sender: FDA-Public Use
  Company Number: IN-SUPERNUS PHARMACEUTICALS, INC.-2018SUP00273

PATIENT
  Age: 36 Year
  Sex: Female

DRUGS (3)
  1. TOPIRAMATE. [Suspect]
     Active Substance: TOPIRAMATE
     Indication: MIGRAINE
     Dosage: 50 MG, 1X/DAY
     Route: 065
  2. TOPIRAMATE. [Suspect]
     Active Substance: TOPIRAMATE
     Dosage: 100 MG, 1X/DAY
     Route: 065
  3. ELTROXIN [Concomitant]
     Active Substance: LEVOTHYROXINE
     Dosage: 100 MG, 1X/DAY
     Route: 065

REACTIONS (7)
  - Cataract [Recovered/Resolved]
  - Angle closure glaucoma [Recovered/Resolved]
  - Vitritis [Recovered/Resolved]
  - Retinal detachment [Recovered/Resolved]
  - Choroidal effusion [Recovered/Resolved]
  - Iris adhesions [Recovered/Resolved]
  - Uveitis [Recovered/Resolved]
